FAERS Safety Report 16079410 (Version 1)
Quarter: 2019Q1

REPORT INFORMATION
  Report Type: Spontaneous
  Country: JP (occurrence: JP)
  Receive Date: 20190315
  Receipt Date: 20190315
  Transmission Date: 20190418
  Serious: Yes (Hospitalization)
  Sender: FDA-Public Use
  Company Number: JP-FERRINGPH-2019FE00960

PATIENT

DRUGS (3)
  1. DESMOPRESSIN [Suspect]
     Active Substance: DESMOPRESSIN
     Indication: DIABETES INSIPIDUS
     Dosage: MORNING AND EVENING
     Route: 045
     Dates: end: 20190222
  2. DESMOPRESSIN [Suspect]
     Active Substance: DESMOPRESSIN
     Dosage: 0.0375 ML IN THE MORNING AND 0.025ML IN THE EVENING
     Route: 045
     Dates: start: 201507
  3. CORTRIL [Suspect]
     Active Substance: HYDROCORTISONE
     Indication: DIABETES INSIPIDUS
     Dosage: 10 MG BID, 2 TIMES DAILY
     Route: 048

REACTIONS (4)
  - Pyrexia [Recovered/Resolved]
  - Hyponatraemia [Recovered/Resolved]
  - Intentional product misuse [Unknown]
  - Headache [Recovered/Resolved]

NARRATIVE: CASE EVENT DATE: 20190219
